FAERS Safety Report 12084916 (Version 2)
Quarter: 2016Q1

REPORT INFORMATION
  Report Type: Other
  Country: US (occurrence: US)
  Receive Date: 20160217
  Receipt Date: 20160304
  Transmission Date: 20160526
  Serious: Yes (Hospitalization, Other)
  Sender: FDA-Public Use
  Company Number: US-SHIRE-US201601303

PATIENT
  Age: 20 Year
  Sex: Female

DRUGS (1)
  1. GATTEX [Suspect]
     Active Substance: TEDUGLUTIDE\WATER
     Indication: SHORT-BOWEL SYNDROME
     Dosage: UNK
     Route: 058
     Dates: start: 20150603

REACTIONS (4)
  - Sepsis [Unknown]
  - Heart rate increased [Unknown]
  - Pyrexia [Unknown]
  - Feeding tube complication [Unknown]

NARRATIVE: CASE EVENT DATE: 201601
